FAERS Safety Report 4923496-5 (Version None)
Quarter: 2006Q1

REPORT INFORMATION
  Report Type: 
  Country: None (occurrence: None)
  Receive Date: 20060227
  Receipt Date: 20060214
  Transmission Date: 20060701
  Serious: Yes (Other)
  Sender: FDA-Public Use
  Company Number: PHBS2006BR02468

PATIENT
  Age: 49 Year
  Sex: Female

DRUGS (3)
  1. ZOMETA [Suspect]
     Indication: METASTASES TO BONE
     Dosage: 4 MG
     Route: 065
     Dates: start: 20031003
  2. AREDIA [Suspect]
     Indication: METASTASES TO BONE
     Dosage: 90 MG
     Route: 065
     Dates: start: 20000101, end: 20020101
  3. FASLODEX [Concomitant]
     Route: 065

REACTIONS (6)
  - BONE DEBRIDEMENT [None]
  - BONE DISORDER [None]
  - DENTAL PROSTHESIS PLACEMENT [None]
  - INFLAMMATION [None]
  - OSTEONECROSIS [None]
  - TOOTH EXTRACTION [None]
